FAERS Safety Report 6044309-7 (Version None)
Quarter: 2009Q1

REPORT INFORMATION
  Report Type: 
  Country: None (occurrence: None)
  Receive Date: 20090120
  Receipt Date: 20080512
  Transmission Date: 20090719
  Serious: No
  Sender: FDA-Public Use
  Company Number: US-BAYER-200812207BCC

PATIENT
  Age: 82 Year
  Sex: Male
  Weight: 75 kg

DRUGS (9)
  1. ALEVE [Suspect]
     Indication: ARTHRALGIA
     Dosage: TOTAL DAILY DOSE: 880 MG  UNIT DOSE: 220 MG
     Dates: start: 20080508, end: 20080511
  2. COREG [Concomitant]
  3. ISOSORBIDE DINITRATE [Concomitant]
  4. DIGITEK [Concomitant]
  5. LISINOPRIL [Concomitant]
  6. ZETIA [Concomitant]
  7. NIASPAN [Concomitant]
  8. LUMIGAN [Concomitant]
  9. DOXAZOSIN MESYLATE [Concomitant]

REACTIONS (1)
  - DYSPNOEA [None]
